FAERS Safety Report 9366123 (Version 2)
Quarter: 2013Q3

REPORT INFORMATION
  Report Type: Report from Study
  Country: VE (occurrence: VE)
  Receive Date: 20130625
  Receipt Date: 20130906
  Transmission Date: 20140515
  Serious: Yes (Death)
  Sender: FDA-Public Use
  Company Number: VE-ABBOTT-13P-178-1108446-00

PATIENT
  Age: 73 Year
  Sex: Male

DRUGS (1)
  1. ZEMPLAR [Suspect]
     Indication: RENAL FAILURE
     Route: 042
     Dates: end: 20130531

REACTIONS (2)
  - Respiratory tract congestion [Fatal]
  - Cardiac failure congestive [Fatal]
